FAERS Safety Report 7832328-7 (Version None)
Quarter: 2011Q4

REPORT INFORMATION
  Report Type: 
  Country: None (occurrence: None)
  Receive Date: 20111022
  Receipt Date: 20111007
  Transmission Date: 20120403
  Serious: Yes (Hospitalization)
  Sender: FDA-Public Use
  Company Number: US-BAYER-2011-029526

PATIENT
  Age: 33 Year
  Sex: Female

DRUGS (5)
  1. CLARITIN [Concomitant]
     Indication: MULTIPLE ALLERGIES
     Dosage: UNK UNK, QD
  2. YASMIN [Suspect]
     Indication: PREMENSTRUAL SYNDROME
     Dosage: UNK
     Dates: start: 20061001, end: 20080101
  3. LIBRAX [Concomitant]
     Dosage: UNK UNK, QD
  4. LIPITOR [Concomitant]
     Indication: HYPERCHOLESTEROLAEMIA
     Dosage: UNK
     Dates: start: 20040101
  5. ZENCHENT [Concomitant]
     Indication: CONTRACEPTION
     Dosage: UNK UNK, QD

REACTIONS (6)
  - CHOLECYSTITIS ACUTE [None]
  - HEPATIC ADENOMA [None]
  - HAEMANGIOMA OF LIVER [None]
  - INJURY [None]
  - PAIN [None]
  - GALLBLADDER DISORDER [None]
